FAERS Safety Report 8676788 (Version 2)
Quarter: 2013Q4

REPORT INFORMATION
  Report Type: Spontaneous
  Country: US (occurrence: US)
  Receive Date: 20120723
  Receipt Date: 20131031
  Transmission Date: 20140711
  Serious: No
  Sender: FDA-Public Use
  Company Number: US-009507513-2012SP023189

PATIENT
  Sex: Male

DRUGS (4)
  1. VICTRELIS [Suspect]
     Indication: HEPATITIS C
     Dosage: 800 MG, Q8H
     Route: 048
     Dates: start: 20120313, end: 20120416
  2. MK-8908 [Suspect]
     Dosage: 600 MG, BID
  3. PEGINTRON [Suspect]
  4. PEGASYS [Concomitant]
     Dosage: 180 MICROGRAM, QW

REACTIONS (1)
  - Chest pain [Unknown]
